FAERS Safety Report 4916405-6 (Version None)
Quarter: 2006Q1

REPORT INFORMATION
  Report Type: 
  Country: None (occurrence: None)
  Receive Date: 20060217
  Receipt Date: 20051005
  Transmission Date: 20060701
  Serious: Yes (Hospitalization, Disabling)
  Sender: FDA-Public Use
  Company Number: US-MERCK-0510USA04584

PATIENT
  Age: 55 Year
  Sex: Female
  Weight: 57 kg

DRUGS (2)
  1. VIOXX [Suspect]
     Indication: NECK PAIN
     Route: 048
     Dates: start: 20020601, end: 20020701
  2. CELEBREX [Concomitant]
     Route: 065

REACTIONS (9)
  - ASTHENIA [None]
  - CARDIOVASCULAR DISORDER [None]
  - DIZZINESS [None]
  - DYSPNOEA [None]
  - FATIGUE [None]
  - HEART RATE IRREGULAR [None]
  - MALAISE [None]
  - PALPITATIONS [None]
  - SICK SINUS SYNDROME [None]
